FAERS Safety Report 18108685 (Version 1)
Quarter: 2020Q3

REPORT INFORMATION
  Report Type: Spontaneous
  Country: ES (occurrence: ES)
  Receive Date: 20200804
  Receipt Date: 20200804
  Transmission Date: 20201103
  Serious: Yes (Hospitalization)
  Sender: FDA-Public Use
  Company Number: ES-JNJFOC-20200744283

PATIENT
  Age: 32 Year
  Sex: Female

DRUGS (5)
  1. LAMOTRIGINA [Suspect]
     Active Substance: LAMOTRIGINE
     Indication: BIPOLAR DISORDER
     Route: 048
     Dates: start: 20200425, end: 20200515
  2. HALOPERIDOL. [Suspect]
     Active Substance: HALOPERIDOL
     Indication: BIPOLAR DISORDER
     Route: 048
     Dates: start: 20200425, end: 20200627
  3. RIVOTRIL [Suspect]
     Active Substance: CLONAZEPAM
     Indication: BIPOLAR DISORDER
     Dosage: 0,5 MG COMPRIMIDOS , 60 COMPRIMIDOS
     Route: 048
     Dates: start: 1999, end: 20200424
  4. SERTRALINE [Suspect]
     Active Substance: SERTRALINE HYDROCHLORIDE
     Indication: BIPOLAR DISORDER
     Route: 048
     Dates: start: 1999, end: 20200424
  5. DEPAKINE                           /00228501/ [Suspect]
     Active Substance: VALPROIC ACID
     Indication: BIPOLAR DISORDER
     Dosage: 200 MG/ML SOLUCION ORAL , 1 FRASCO DE 40 ML
     Route: 048
     Dates: start: 1999, end: 20200424

REACTIONS (2)
  - Foetal death [Recovered/Resolved]
  - Exposure during pregnancy [Recovered/Resolved]

NARRATIVE: CASE EVENT DATE: 20200617
